FAERS Safety Report 6152156-0 (Version None)
Quarter: 2009Q2

REPORT INFORMATION
  Report Type: 
  Country: None (occurrence: None)
  Receive Date: 20090409
  Receipt Date: 20090409
  Transmission Date: 20091009
  Serious: Yes (Hospitalization)
  Sender: FDA-Public Use
  Company Number: None

PATIENT
  Sex: Male
  Weight: 66.3612 kg

DRUGS (1)
  1. VENOFER [Suspect]
     Indication: ANAEMIA
     Dosage: 300MG ONE TIME IV DRIP
     Route: 041
     Dates: start: 20090324, end: 20090324

REACTIONS (5)
  - DEHYDRATION [None]
  - HYPOTENSION [None]
  - HYPOXIA [None]
  - SEPSIS [None]
  - SYNCOPE [None]
